FAERS Safety Report 24155434 (Version 8)
Quarter: 2025Q4

REPORT INFORMATION
  Report Type: Report from Study
  Country: EU (occurrence: EU)
  Receive Date: 20240731
  Receipt Date: 20251010
  Transmission Date: 20260117
  Serious: Yes (Hospitalization, Other)
  Sender: EXELIXIS
  Company Number: EU-IPSEN Group, Research and Development-2024-10111

PATIENT

DRUGS (11)
  1. CABOZANTINIB [Suspect]
     Active Substance: CABOZANTINIB
     Indication: Renal cell carcinoma
     Dosage: 60 MG, DAILY
     Dates: start: 20240426, end: 20240513
  2. CABOZANTINIB [Suspect]
     Active Substance: CABOZANTINIB
     Dosage: 40 MG, DAILY
     Dates: start: 20240520, end: 20240605
  3. CABOZANTINIB [Suspect]
     Active Substance: CABOZANTINIB
     Dosage: 40 MG, EVERY OTHER DAY
     Dates: start: 20240606, end: 20240715
  4. CABOZANTINIB [Suspect]
     Active Substance: CABOZANTINIB
     Dosage: 30 MG, DAILY
     Dates: start: 20240716, end: 20240723
  5. IBUPROFEN [Concomitant]
     Active Substance: IBUPROFEN
     Indication: Torticollis
     Dosage: AS NEEDED, ONGOING
     Dates: start: 20240702
  6. NADROPARIN CALCIUM [Concomitant]
     Active Substance: NADROPARIN CALCIUM
     Indication: Pulmonary embolism
     Dosage: ONGOING
     Dates: start: 20240802
  7. COMBIVENT [Concomitant]
     Active Substance: ALBUTEROL SULFATE\IPRATROPIUM BROMIDE
     Indication: Pulmonary embolism
     Dosage: 2.5 PLUS 0.5 MG AS NEEDED, ONGOING
     Route: 055
     Dates: start: 20240801
  8. TRAMADOL HYDROCHLORIDE [Concomitant]
     Active Substance: TRAMADOL HYDROCHLORIDE
     Indication: Pleural effusion
     Dosage: 150 MG, BID
     Dates: start: 20240724
  9. ENOXAPARIN SODIUM [Concomitant]
     Active Substance: ENOXAPARIN SODIUM
     Indication: Pulmonary embolism
     Dosage: 80 MG, BID
     Dates: start: 20240725, end: 20240801
  10. ALIZAPRIDE HYDROCHLORIDE [Concomitant]
     Active Substance: ALIZAPRIDE HYDROCHLORIDE
     Dosage: 100 MG
     Dates: start: 20240724, end: 20240801
  11. AUGMENTIN [Concomitant]
     Active Substance: AMOXICILLIN\CLAVULANATE POTASSIUM
     Indication: Abscess limb
     Dosage: 3 TIMES A DAY
     Dates: start: 20240705, end: 20240709

REACTIONS (8)
  - General physical health deterioration [Not Recovered/Not Resolved]
  - Anuria [Recovered/Resolved]
  - Mucosal inflammation [Recovered/Resolved]
  - Fatigue [Recovered/Resolved]
  - Decreased appetite [Not Recovered/Not Resolved]
  - Dysphonia [Not Recovered/Not Resolved]
  - Diarrhoea [Not Recovered/Not Resolved]
  - Nausea [Recovered/Resolved]

NARRATIVE: CASE EVENT DATE: 20240502
